FAERS Safety Report 16822849 (Version 1)
Quarter: 2019Q4

REPORT INFORMATION
  Report Type: Spontaneous
  Country: US (occurrence: US)
  Receive Date: 20190918
  Receipt Date: 20190918
  Transmission Date: 20200122
  Serious: Yes (Hospitalization)
  Sender: FDA-Public Use
  Company Number: None

PATIENT
  Age: 17 Year
  Sex: Female

DRUGS (19)
  1. CREON [Concomitant]
     Active Substance: PANCRELIPASE AMYLASE\PANCRELIPASE LIPASE\PANCRELIPASE PROTEASE
  2. TAMIFLU [Concomitant]
     Active Substance: OSELTAMIVIR PHOSPHATE
  3. TOBRAMYCIN. [Suspect]
     Active Substance: TOBRAMYCIN
     Indication: CYSTIC FIBROSIS
     Dosage: 300 MG TWICE A DAY VIA NEB
     Dates: start: 20140827
  4. ULTRASE MT12 [Concomitant]
  5. HIBICLENS [Concomitant]
     Active Substance: CHLORHEXIDINE GLUCONATE
  6. CEFDINER [Concomitant]
  7. FLUTICASONE. [Concomitant]
     Active Substance: FLUTICASONE
  8. BREATHERITE [Concomitant]
  9. MUPIROCIN. [Concomitant]
     Active Substance: MUPIROCIN
  10. PERMETHRIN. [Concomitant]
     Active Substance: PERMETHRIN
  11. PULMOZYME [Concomitant]
     Active Substance: DORNASE ALFA
  12. MINOCYCLINE [Concomitant]
     Active Substance: MINOCYCLINE HYDROCHLORIDE
  13. SMZ/TMP [Concomitant]
     Active Substance: SULFAMETHOXAZOLE\TRIMETHOPRIM
  14. CLARITHROMYC [Concomitant]
  15. XOPENEX [Concomitant]
     Active Substance: LEVALBUTEROL HYDROCHLORIDE
  16. OMEPRAZOLE. [Concomitant]
     Active Substance: OMEPRAZOLE
  17. ZYVOX [Concomitant]
     Active Substance: LINEZOLID
  18. XOPENEX [Concomitant]
     Active Substance: LEVALBUTEROL HYDROCHLORIDE
  19. SERTRALINE [Concomitant]
     Active Substance: SERTRALINE HYDROCHLORIDE

REACTIONS (2)
  - Infective pulmonary exacerbation of cystic fibrosis [None]
  - Infection [None]

NARRATIVE: CASE EVENT DATE: 20190830
